FAERS Safety Report 12681780 (Version 2)
Quarter: 2021Q3

REPORT INFORMATION
  Report Type: Report from Study
  Country: BR (occurrence: BR)
  Receive Date: 20160824
  Receipt Date: 20210811
  Transmission Date: 20211014
  Serious: Yes (Death, Life-Threatening, Hospitalization, Other)
  Sender: FDA-Public Use
  Company Number: BR-SHIRE-BR201506317

PATIENT
  Age: 30 Year
  Sex: Male

DRUGS (3)
  1. IDURSULFASE [Suspect]
     Active Substance: IDURSULFASE
     Dosage: 0.5 MG/KG, 1X/2WKS
     Route: 041
     Dates: start: 20040123
  2. IDURSULFASE [Suspect]
     Active Substance: IDURSULFASE
     Dosage: 0.5 MG/KG, 1X/WEEK
     Route: 041
     Dates: start: 20050120, end: 20100701
  3. IDURSULFASE [Suspect]
     Active Substance: IDURSULFASE
     Indication: MUCOPOLYSACCHARIDOSIS II
     Dosage: 0.5 MG/KG, 1X/WEEK
     Route: 041
     Dates: start: 20110602

REACTIONS (7)
  - Respiratory disorder [Fatal]
  - Respiratory failure [Fatal]
  - Cardio-respiratory arrest [Fatal]
  - Tracheostomy malfunction [Fatal]
  - Cardiopulmonary failure [Fatal]
  - Disease progression [Fatal]
  - Lung disorder [Fatal]

NARRATIVE: CASE EVENT DATE: 20150611
